FAERS Safety Report 20472028 (Version 2)
Quarter: 2022Q1

REPORT INFORMATION
  Report Type: Report from Study
  Country: US (occurrence: US)
  Receive Date: 20220214
  Receipt Date: 20220301
  Transmission Date: 20220423
  Serious: Yes (Death, Life-Threatening, Hospitalization, Other)
  Sender: FDA-Public Use
  Company Number: US-ABBVIE-22P-163-4276057-00

PATIENT
  Age: 2 Year
  Sex: Female
  Weight: 13 kg

DRUGS (14)
  1. VENETOCLAX [Suspect]
     Active Substance: VENETOCLAX
     Indication: T-cell type acute leukaemia
     Route: 048
     Dates: start: 20211216, end: 20211227
  2. VENETOCLAX [Suspect]
     Active Substance: VENETOCLAX
     Route: 048
     Dates: start: 20211228, end: 20211229
  3. VENETOCLAX [Suspect]
     Active Substance: VENETOCLAX
     Route: 048
     Dates: start: 20220103, end: 20220105
  4. NAVITOCLAX [Suspect]
     Active Substance: NAVITOCLAX
     Indication: T-cell type acute leukaemia
     Route: 048
     Dates: start: 20211218, end: 20211226
  5. NAVITOCLAX [Suspect]
     Active Substance: NAVITOCLAX
     Route: 048
     Dates: start: 20220102, end: 20220105
  6. MEROPENEM [Concomitant]
     Active Substance: MEROPENEM
     Indication: Bacterial infection
     Route: 042
     Dates: start: 20211231, end: 20220101
  7. MEROPENEM [Concomitant]
     Active Substance: MEROPENEM
     Indication: Klebsiella infection
     Route: 042
     Dates: start: 20220102, end: 20220102
  8. MEROPENEM [Concomitant]
     Active Substance: MEROPENEM
     Route: 042
     Dates: start: 20220103, end: 20220103
  9. VANCOMYCIN [Concomitant]
     Active Substance: VANCOMYCIN
     Indication: Parainfluenzae virus infection
     Dosage: 270 MG X1
     Route: 042
     Dates: start: 20211227, end: 20211227
  10. VANCOMYCIN [Concomitant]
     Active Substance: VANCOMYCIN
     Indication: Rhinovirus infection
     Dosage: 270 MG X2
     Route: 042
     Dates: start: 20211228, end: 20211228
  11. VANCOMYCIN [Concomitant]
     Active Substance: VANCOMYCIN
     Indication: Streptococcus test positive
     Dosage: 215 MG X2
     Route: 042
     Dates: start: 20211228, end: 20211228
  12. VANCOMYCIN [Concomitant]
     Active Substance: VANCOMYCIN
     Indication: Product used for unknown indication
     Dosage: 215 MG X4
     Dates: start: 20211229, end: 20211229
  13. VANCOMYCIN [Concomitant]
     Active Substance: VANCOMYCIN
     Indication: Enterovirus infection
     Dosage: 215 MG X3
     Dates: start: 20211230, end: 20211230
  14. VANCOMYCIN [Concomitant]
     Active Substance: VANCOMYCIN
     Dosage: 215 MG X2
     Route: 042
     Dates: start: 20211231, end: 20211231

REACTIONS (8)
  - Respiratory failure [Fatal]
  - Pneumonia viral [Unknown]
  - Diarrhoea [Recovered/Resolved]
  - Vomiting [Recovered/Resolved]
  - Dehydration [Recovered/Resolved]
  - Stomatitis [Not Recovered/Not Resolved]
  - Hypokalaemia [Recovered/Resolved]
  - Hypocalcaemia [Recovered/Resolved]

NARRATIVE: CASE EVENT DATE: 20211222
